FAERS Safety Report 4591100-4 (Version None)
Quarter: 2005Q1

REPORT INFORMATION
  Report Type: 
  Country: None (occurrence: None)
  Receive Date: 20050218
  Receipt Date: 20050203
  Transmission Date: 20050727
  Serious: Yes (Life-Threatening)
  Sender: FDA-Public Use
  Company Number: PHRM2005FR00481

PATIENT
  Age: 74 Year
  Sex: Female
  Weight: 68.9921 kg

DRUGS (1)
  1. VISUDYNE [Suspect]
     Dates: start: 20041223, end: 20041223

REACTIONS (1)
  - ANAPHYLACTIC SHOCK [None]
